FAERS Safety Report 5790170-5 (Version None)
Quarter: 2008Q2

REPORT INFORMATION
  Report Type: 
  Country: None (occurrence: None)
  Receive Date: 20080626
  Receipt Date: 20080221
  Transmission Date: 20081010
  Serious: No
  Sender: FDA-Public Use
  Company Number: A0702990A

PATIENT
  Age: 28 Year
  Weight: 85.9 kg

DRUGS (1)
  1. ALLI [Suspect]
     Dates: start: 20080102

REACTIONS (10)
  - ABDOMINAL PAIN [None]
  - DEPRESSED MOOD [None]
  - DIARRHOEA [None]
  - DRUG INEFFECTIVE [None]
  - FOOD CRAVING [None]
  - FRUSTRATION [None]
  - GASTROINTESTINAL DISORDER [None]
  - RECTAL DISCHARGE [None]
  - WEIGHT FLUCTUATION [None]
  - WEIGHT INCREASED [None]
